FAERS Safety Report 22355862 (Version 1)
Quarter: 2023Q2

REPORT INFORMATION
  Report Type: Spontaneous
  Country: US (occurrence: None)
  Receive Date: 20230523
  Receipt Date: 20230523
  Transmission Date: 20230722
  Serious: Yes (Hospitalization)
  Sender: FDA-Public Use
  Company Number: None

PATIENT
  Sex: Female

DRUGS (9)
  1. DALFAMPRIDINE [Suspect]
     Active Substance: DALFAMPRIDINE
     Indication: Multiple sclerosis
     Dosage: 10 MG ORAL??TAKE 1 TABLET BY MOUTH EVERY DAY
     Route: 048
     Dates: start: 20181017
  2. DALFAMPRIDINE [Suspect]
     Active Substance: DALFAMPRIDINE
     Dosage: FREQUENCY : DAILY;?
     Route: 048
  3. AMANTADINE [Concomitant]
  4. AMPYRA [Concomitant]
     Active Substance: DALFAMPRIDINE
  5. BACLOFEN [Concomitant]
  6. MODAFINIL [Concomitant]
     Active Substance: MODAFINIL
  7. VENLAFAXINE [Concomitant]
  8. VITAMIN B12 [Concomitant]
     Active Substance: CYANOCOBALAMIN
  9. VITAMIN D [Concomitant]
     Active Substance: VITAMIN D NOS

REACTIONS (1)
  - Hip fracture [None]
